FAERS Safety Report 14829066 (Version 1)
Quarter: 2018Q2

REPORT INFORMATION
  Report Type: Spontaneous
  Country: US (occurrence: US)
  Receive Date: 20180406
  Receipt Date: 20180406
  Transmission Date: 20180711
  Serious: Yes (Other)
  Sender: FDA-Public Use
  Company Number: None

PATIENT
  Age: 59 Year
  Sex: Male
  Weight: 111.6 kg

DRUGS (10)
  1. ULORIC OXYGEN [Concomitant]
  2. PROBIOTIC [Concomitant]
     Active Substance: PROBIOTICS NOS
  3. FENTANYL TRANSDERMAL SYSTEM [Suspect]
     Active Substance: FENTANYL
     Indication: MUSCULOSKELETAL CHEST PAIN
     Dosage: ?          OTHER STRENGTH:50 MCG/H;QUANTITY:1 PATCH(ES);OTHER FREQUENCY:3 DAYS;?
     Route: 062
     Dates: start: 20180130, end: 20180402
  4. ATENOLOL. [Concomitant]
     Active Substance: ATENOLOL
  5. FENTANYL. [Concomitant]
     Active Substance: FENTANYL
  6. VITAMIN D [Concomitant]
     Active Substance: CHOLECALCIFEROL
  7. LISINOPRIL. [Concomitant]
     Active Substance: LISINOPRIL
  8. RANEXA [Concomitant]
     Active Substance: RANOLAZINE
  9. ASPIRIN. [Concomitant]
     Active Substance: ASPIRIN
  10. OMEGA 3 [Concomitant]
     Active Substance: OMEGA-3 FATTY ACIDS

REACTIONS (2)
  - Product quality issue [None]
  - Pain [None]

NARRATIVE: CASE EVENT DATE: 20180326
